FAERS Safety Report 8934320 (Version 1)
Quarter: 2012Q4

REPORT INFORMATION
  Report Type: 
  Country: US (occurrence: US)
  Receive Date: 20121129
  Receipt Date: 20121129
  Transmission Date: 20130627
  Serious: No
  Sender: FDA-Public Use
  Company Number: US-PFIZER INC-2012296681

PATIENT
  Age: 74 Year
  Sex: Male
  Weight: 86.17 kg

DRUGS (3)
  1. LIPITOR [Suspect]
     Indication: HIGH CHOLESTEROL
     Dosage: 40 mg, daily
  2. LISINOPRIL [Concomitant]
     Dosage: 20 mg, daily
  3. METFORMIN [Concomitant]
     Dosage: 1500 mg, daily

REACTIONS (1)
  - Myalgia [Unknown]
